FAERS Safety Report 14367908 (Version 1)
Quarter: 2018Q1

REPORT INFORMATION
  Report Type: Spontaneous
  Country: US (occurrence: US)
  Receive Date: 20180108
  Receipt Date: 20180108
  Transmission Date: 20180509
  Serious: No
  Sender: FDA-Public Use
  Company Number: None

PATIENT
  Age: 76 Year
  Sex: Male

DRUGS (1)
  1. TASIGNA [Suspect]
     Active Substance: NILOTINIB

REACTIONS (6)
  - Nasal congestion [None]
  - Nasopharyngitis [None]
  - Upper-airway cough syndrome [None]
  - Drug interaction [None]
  - Pain [None]
  - Pulmonary congestion [None]

NARRATIVE: CASE EVENT DATE: 20170108
